FAERS Safety Report 23411584 (Version 1)
Quarter: 2024Q1

REPORT INFORMATION
  Report Type: Spontaneous
  Country: US (occurrence: US)
  Receive Date: 20240117
  Receipt Date: 20240117
  Transmission Date: 20240410
  Serious: No
  Sender: FDA-Public Use
  Company Number: US-AMGEN-USASP2024007774

PATIENT
  Age: 32 Year
  Sex: Male

DRUGS (2)
  1. BEVACIZUMAB [Suspect]
     Active Substance: BEVACIZUMAB
     Indication: Schwannoma
     Dosage: 10 MILLIGRAM/KG Q4WK
     Route: 042
  2. BEVACIZUMAB [Suspect]
     Active Substance: BEVACIZUMAB
     Dosage: 5 MILLIGRAM/KG Q8WK
     Route: 042

REACTIONS (3)
  - Drug effective for unapproved indication [Unknown]
  - Decubitus ulcer [Unknown]
  - Off label use [Unknown]
